FAERS Safety Report 10165513 (Version 2)
Quarter: 2014Q2

REPORT INFORMATION
  Report Type: Spontaneous
  Country: US (occurrence: US)
  Receive Date: 20140510
  Receipt Date: 20140510
  Transmission Date: 20141212
  Serious: No
  Sender: FDA-Public Use
  Company Number: US-BRISTOL-MYERS SQUIBB COMPANY-19841501

PATIENT
  Age: 49 Year
  Sex: Female
  Weight: 113.38 kg

DRUGS (3)
  1. BYDUREON  2MG SUSPENSION [Suspect]
     Indication: TYPE 2 DIABETES MELLITUS
     Route: 058
     Dates: start: 20131025
  2. SIMVASTATIN [Concomitant]
  3. FORTAMET [Concomitant]

REACTIONS (4)
  - Head discomfort [Unknown]
  - Diarrhoea [Unknown]
  - Weight decreased [Unknown]
  - Nervousness [Recovering/Resolving]
